FAERS Safety Report 7287893-8 (Version None)
Quarter: 2011Q1

REPORT INFORMATION
  Report Type: 
  Country: None (occurrence: None)
  Receive Date: 20110211
  Receipt Date: 20110105
  Transmission Date: 20110831
  Serious: No
  Sender: FDA-Public Use
  Company Number: A0903332A

PATIENT
  Age: 51 Year
  Sex: Female

DRUGS (7)
  1. TREXIMET [Suspect]
     Indication: MIGRAINE
     Dosage: 1TAB SINGLE DOSE
     Route: 048
     Dates: start: 20101201, end: 20101201
  2. ACETAZOLAMIDE [Concomitant]
  3. TRAZODONE [Concomitant]
  4. DULCOLAX [Concomitant]
  5. VITAMIN D [Concomitant]
  6. CLONAZEPAM [Concomitant]
  7. MELATONIN [Concomitant]

REACTIONS (2)
  - DIZZINESS [None]
  - DEREALISATION [None]
